FAERS Safety Report 16956634 (Version 1)
Quarter: 2019Q4

REPORT INFORMATION
  Report Type: Spontaneous
  Country: US (occurrence: US)
  Receive Date: 20191023
  Receipt Date: 20191023
  Transmission Date: 20200122
  Serious: No
  Sender: FDA-Public Use
  Company Number: None

PATIENT
  Age: 72 Year
  Sex: Female

DRUGS (18)
  1. HUMIRA [Suspect]
     Active Substance: ADALIMUMAB
     Indication: PRODUCT USED FOR UNKNOWN INDICATION
     Dosage: ?          OTHER FREQUENCY:Q 2 WEEKS;?
     Route: 058
     Dates: start: 20180125
  2. ALENDRONATE [Concomitant]
     Active Substance: ALENDRONATE SODIUM
  3. OMEPRAZOLE. [Concomitant]
     Active Substance: OMEPRAZOLE
  4. OMEPRAZOLE. [Concomitant]
     Active Substance: OMEPRAZOLE
  5. LYRICA [Concomitant]
     Active Substance: PREGABALIN
  6. OXYBUTYNIN. [Concomitant]
     Active Substance: OXYBUTYNIN CHLORIDE
  7. LEOTHYROXIN [Concomitant]
  8. EVISTA [Concomitant]
     Active Substance: RALOXIFENE HYDROCHLORIDE
  9. ASPIRIN. [Concomitant]
     Active Substance: ASPIRIN
  10. ZOLPIDEM [Concomitant]
     Active Substance: ZOLPIDEM TARTRATE
  11. TIZANIDINE. [Concomitant]
     Active Substance: TIZANIDINE
  12. AMLODIPINE [Concomitant]
     Active Substance: AMLODIPINE BESYLATE
  13. TOPAMAX [Concomitant]
     Active Substance: TOPIRAMATE
  14. CENTRUM [Concomitant]
     Active Substance: VITAMINS
  15. PREGABLIN [Concomitant]
     Active Substance: PREGABALIN
  16. CALCIUM [Concomitant]
     Active Substance: CALCIUM
  17. LOSARTAN. [Concomitant]
     Active Substance: LOSARTAN
  18. TRAMADOL. [Concomitant]
     Active Substance: TRAMADOL

REACTIONS (1)
  - Heart valve stenosis [None]
